FAERS Safety Report 8183274-3 (Version None)
Quarter: 2012Q1

REPORT INFORMATION
  Report Type: 
  Country: None (occurrence: None)
  Receive Date: 20120305
  Receipt Date: 20120227
  Transmission Date: 20120608
  Serious: Yes (Hospitalization)
  Sender: FDA-Public Use
  Company Number: US-B.I. PHARMACEUTICALS,INC./RIDGEFIELD-2012-BP-03761BP

PATIENT
  Age: 64 Year
  Sex: Female

DRUGS (4)
  1. PRADAXA [Suspect]
     Indication: ATRIAL FIBRILLATION
     Dosage: 300 MG
     Route: 048
     Dates: start: 20120207, end: 20120209
  2. AMIODARONE HCL [Concomitant]
     Indication: ATRIAL FIBRILLATION
  3. POTASSIUM CHLORIDE [Concomitant]
     Indication: SUPPLEMENTATION THERAPY
  4. MAXZIDE/HCTZ [Concomitant]
     Indication: HYPERTENSION

REACTIONS (9)
  - ORAL PRURITUS [None]
  - PHARYNGEAL OEDEMA [None]
  - SWOLLEN TONGUE [None]
  - TOOTHACHE [None]
  - SWELLING FACE [None]
  - PRURITUS [None]
  - HEART RATE INCREASED [None]
  - FACIAL PAIN [None]
  - ABDOMINAL PAIN UPPER [None]
